FAERS Safety Report 10908595 (Version 1)
Quarter: 2015Q1

REPORT INFORMATION
  Report Type: Spontaneous
  Country: US (occurrence: US)
  Receive Date: 20150312
  Receipt Date: 20150312
  Transmission Date: 20150721
  Serious: No
  Sender: FDA-Public Use
  Company Number: US-009507513-1503USA005044

PATIENT
  Sex: Female

DRUGS (1)
  1. DR. SCHOLLS ULTRA THIN CORN REMOVERS [Suspect]
     Active Substance: SALICYLIC ACID
     Indication: HYPERKERATOSIS
     Dosage: UNK, UNKNOWN
     Route: 061

REACTIONS (4)
  - Application site erythema [Not Recovered/Not Resolved]
  - Drug ineffective [Unknown]
  - Condition aggravated [Not Recovered/Not Resolved]
  - Application site discolouration [Not Recovered/Not Resolved]
